FAERS Safety Report 11195102 (Version 1)
Quarter: 2015Q2

REPORT INFORMATION
  Report Type: Spontaneous
  Country: FR (occurrence: FR)
  Receive Date: 20150617
  Receipt Date: 20150617
  Transmission Date: 20150821
  Serious: Yes (Hospitalization)
  Sender: FDA-Public Use
  Company Number: FR-AUROBINDO-AUR-APL-2015-05121

PATIENT
  Age: 76 Year
  Sex: Male

DRUGS (7)
  1. ESOMEPRAZOLE [Concomitant]
     Active Substance: ESOMEPRAZOLE
     Indication: PRODUCT USED FOR UNKNOWN INDICATION
     Dosage: UNK
     Route: 065
  2. OFLOXACIN. [Suspect]
     Active Substance: OFLOXACIN
     Indication: OSTEITIS
     Dosage: 2 DF, DAILY
     Route: 048
     Dates: start: 20150519, end: 20150522
  3. FUNGIZONE [Suspect]
     Active Substance: AMPHOTERICIN B
     Indication: GASTROINTESTINAL CANDIDIASIS
     Dosage: 15 ML, 3 TIMES A DAY
     Route: 048
     Dates: start: 20150518, end: 20150522
  4. BACTRIM [Concomitant]
     Active Substance: SULFAMETHOXAZOLE\TRIMETHOPRIM
     Indication: OSTEITIS
     Dosage: UNK
     Route: 065
     Dates: start: 20150519
  5. TRAMADOL ARROW TABLET 50MG [Suspect]
     Active Substance: TRAMADOL
     Indication: PAIN
     Dosage: 2 DF, DAILY
     Route: 048
     Dates: start: 20150520, end: 20150520
  6. EUPHYLLINE /00012201/ [Suspect]
     Active Substance: THEOPHYLLINE ANHYDROUS
     Indication: BRADYCARDIA
     Dosage: 2 DF, DAILY
     Route: 048
     Dates: start: 20150511, end: 20150522
  7. DIFFU K [Concomitant]
     Active Substance: POTASSIUM CHLORIDE
     Indication: PRODUCT USED FOR UNKNOWN INDICATION
     Dosage: UNK
     Route: 065

REACTIONS (1)
  - Myoclonic epilepsy [Recovered/Resolved]

NARRATIVE: CASE EVENT DATE: 20150521
